FAERS Safety Report 9155847 (Version 1)
Quarter: 2013Q1

REPORT INFORMATION
  Report Type: Spontaneous
  Country: US (occurrence: US)
  Receive Date: 20130311
  Receipt Date: 20130311
  Transmission Date: 20140127
  Serious: No
  Sender: FDA-Public Use
  Company Number: US-B.I. PHARMACEUTICALS,INC./RIDGEFIELD-2013-BI-06338BP

PATIENT
  Age: 68 Year
  Sex: Female

DRUGS (4)
  1. ZANTAC (RANITIDINE HYDROCHLORIDE) [Suspect]
     Indication: DYSPEPSIA
     Dosage: 75 MG
     Route: 048
     Dates: start: 20130304
  2. DILTIAZEM ER [Concomitant]
     Dosage: 240 MG
     Route: 048
  3. PANTOPRAZOLE [Concomitant]
     Indication: GASTROOESOPHAGEAL REFLUX DISEASE
     Dosage: 40 MG
     Route: 048
  4. VALSARTAN/HCTZ [Concomitant]
     Indication: HYPERTENSION
     Route: 048

REACTIONS (1)
  - Palpitations [Recovered/Resolved]
